FAERS Safety Report 16279203 (Version 1)
Quarter: 2019Q2

REPORT INFORMATION
  Report Type: Spontaneous
  Country: DE (occurrence: DE)
  Receive Date: 20190506
  Receipt Date: 20190506
  Transmission Date: 20190711
  Serious: Yes (Other)
  Sender: FDA-Public Use
  Company Number: DE-BRISTOL-MYERS SQUIBB COMPANY-BMS-2019-034071

PATIENT
  Age: 67 Year
  Sex: Female

DRUGS (1)
  1. OPDIVO [Suspect]
     Active Substance: NIVOLUMAB
     Indication: RENAL CELL CARCINOMA
     Dosage: 240 MILLIGRAM
     Route: 042
     Dates: start: 20190221

REACTIONS (5)
  - General physical health deterioration [Recovered/Resolved]
  - Feeling cold [Unknown]
  - Chills [Recovered/Resolved]
  - Nausea [Unknown]
  - Tremor [Unknown]

NARRATIVE: CASE EVENT DATE: 20190307
